FAERS Safety Report 8195916-7 (Version None)
Quarter: 2012Q1

REPORT INFORMATION
  Report Type: 
  Country: None (occurrence: None)
  Receive Date: 20120308
  Receipt Date: 20120228
  Transmission Date: 20120608
  Serious: Yes (Other)
  Sender: FDA-Public Use
  Company Number: US-AMGEN-USASP2011062178

PATIENT

DRUGS (12)
  1. PRENATAL                           /00231801/ [Concomitant]
     Dosage: UNK UNK, QD
     Route: 064
  2. ENBREL [Suspect]
     Dosage: 50 MG, QWK
     Route: 064
  3. ZANTAC [Concomitant]
     Dosage: 150 MG, BID
     Route: 064
  4. ENBREL [Suspect]
     Dosage: 50 MG, QWK
     Route: 064
  5. LOTEMAX [Concomitant]
     Dosage: UNK UNK, QD
     Route: 064
  6. COLACE [Concomitant]
     Dosage: 100 MG, BID
  7. CALCIUM CITRATE [Concomitant]
     Dosage: 1500 MG, QD
     Route: 064
  8. PREDNISONE [Concomitant]
     Dosage: 2.5 MG, QD
     Route: 064
     Dates: start: 20110201, end: 20110301
  9. ENBREL [Suspect]
     Dosage: 50 MG, QWK
     Route: 064
  10. PREDNISONE [Concomitant]
     Dosage: 5 MG, QD
     Route: 064
  11. FOLIC ACID [Concomitant]
     Dosage: 400 MG, QD
     Route: 064
  12. ASPIRIN [Concomitant]
     Dosage: 81 MG, QD
     Route: 064

REACTIONS (7)
  - EXPOSURE DURING BREAST FEEDING [None]
  - MECONIUM IN AMNIOTIC FLUID [None]
  - POSTMATURE BABY [None]
  - NEONATAL RESPIRATORY DISTRESS SYNDROME [None]
  - NEONATAL ASPIRATION [None]
  - CARDIAC MURMUR [None]
  - MATERNAL DRUGS AFFECTING FOETUS [None]
